FAERS Safety Report 10257709 (Version 1)
Quarter: 2014Q2

REPORT INFORMATION
  Report Type: Spontaneous
  Country: US (occurrence: US)
  Receive Date: 20140625
  Receipt Date: 20140625
  Transmission Date: 20141212
  Serious: No
  Sender: FDA-Public Use
  Company Number: US-009507513-1406USA008710

PATIENT
  Age: 81 Year
  Sex: Female

DRUGS (1)
  1. EMEND [Suspect]
     Indication: NAUSEA
     Route: 048

REACTIONS (3)
  - Head injury [Unknown]
  - Balance disorder [Unknown]
  - Fall [Unknown]
